FAERS Safety Report 11438257 (Version 1)
Quarter: 2015Q3

REPORT INFORMATION
  Report Type: Spontaneous
  Country: US (occurrence: None)
  Receive Date: 20150828
  Receipt Date: 20150828
  Transmission Date: 20151125
  Serious: Yes (Death)
  Sender: FDA-Public Use
  Company Number: 1713747-2015-999278

PATIENT
  Age: 56 Year
  Sex: Male
  Weight: 148 kg

DRUGS (17)
  1. ALLOPURINOL. [Concomitant]
     Active Substance: ALLOPURINOL
  2. EPOGEN [Concomitant]
     Active Substance: ERYTHROPOIETIN
  3. LIBERTY CYCLER [Concomitant]
     Active Substance: DEVICE
  4. LANTUS [Concomitant]
     Active Substance: INSULIN GLARGINE
  5. LIBERTY CASSETTE [Concomitant]
  6. GABAPENTIN. [Concomitant]
     Active Substance: GABAPENTIN
  7. NOVOLOG [Concomitant]
     Active Substance: INSULIN ASPART
  8. DIALYVITE [Concomitant]
     Active Substance: ASCORBIC ACID\BIOTIN\CALCIUM PANTOTHENATE\COBALAMIN\FOLIC ACID\NIACINAMIDE\PYRIDOXINE HYDROCHLORIDE\RIBOFLAVIN\THIAMINE MONONITRATE
  9. FUROSEMIDE. [Concomitant]
     Active Substance: FUROSEMIDE
  10. TRADJENTA [Concomitant]
     Active Substance: LINAGLIPTIN
  11. ASPIRIN. [Concomitant]
     Active Substance: ASPIRIN
  12. VENOFER [Concomitant]
     Active Substance: IRON SUCROSE
  13. CARVEDILOL. [Concomitant]
     Active Substance: CARVEDILOL
  14. PRAVACHOL [Concomitant]
     Active Substance: PRAVASTATIN SODIUM
  15. VANCOMYCIN [Concomitant]
     Active Substance: VANCOMYCIN
  16. DELFLEX [Suspect]
     Active Substance: CALCIUM CHLORIDE\DEXTROSE MONOHYDRATE\MAGNESIUM CHLORIDE\SODIUM CHLORIDE\SODIUM LACTATE
     Indication: PERITONEAL DIALYSIS
     Route: 033
  17. FORTAZ [Concomitant]
     Active Substance: CEFTAZIDIME SODIUM

REACTIONS (1)
  - Cardiac arrest [None]

NARRATIVE: CASE EVENT DATE: 20150808
